FAERS Safety Report 6470355-5 (Version None)
Quarter: 2009Q4

REPORT INFORMATION
  Report Type: 
  Country: None (occurrence: None)
  Receive Date: 20091202
  Receipt Date: 20091202
  Transmission Date: 20100525
  Serious: Yes (Hospitalization)
  Sender: FDA-Public Use
  Company Number: None

PATIENT
  Age: 73 Year
  Sex: Male

DRUGS (1)
  1. VANCOMYCIN [Suspect]
     Indication: OSTEOMYELITIS
     Dosage: 1 GM EVERY DAY IV
     Route: 042
     Dates: start: 20090831, end: 20090915

REACTIONS (3)
  - DRUG LEVEL INCREASED [None]
  - LEUKOCYTOSIS [None]
  - RENAL FAILURE ACUTE [None]
